FAERS Safety Report 5391947-0 (Version None)
Quarter: 2007Q3

REPORT INFORMATION
  Report Type: 
  Country: None (occurrence: None)
  Receive Date: 20070720
  Receipt Date: 20070712
  Transmission Date: 20080115
  Serious: Yes (Other)
  Sender: FDA-Public Use
  Company Number: PHBS2007BR12006

PATIENT
  Age: 60 Year
  Sex: Male
  Weight: 50 kg

DRUGS (4)
  1. OLCADIL [Suspect]
     Indication: DEPRESSION
     Dosage: 2 MG, TID
     Route: 048
     Dates: start: 19970925, end: 20020101
  2. OLCADIL [Suspect]
     Dosage: HALF A 1 MG TABLET AT NIGHT
     Route: 048
     Dates: start: 20020101, end: 20070601
  3. OLCADIL [Suspect]
     Dosage: 1/2 X 1 MG IN AFTERNOON AND AT NIGHT
     Route: 048
     Dates: start: 20070601
  4. LUDIOMIL [Suspect]
     Indication: DEPRESSION
     Dosage: ONE 25 MG TABLET EVERY MON, WED, FRI
     Route: 048
     Dates: start: 20020101

REACTIONS (7)
  - DEPRESSION [None]
  - DIZZINESS [None]
  - DYSACUSIS [None]
  - EAR CONGESTION [None]
  - HEARING IMPAIRED [None]
  - SOMNOLENCE [None]
  - TINNITUS [None]
